FAERS Safety Report 8934757 (Version 1)
Quarter: 2012Q4

REPORT INFORMATION
  Report Type: 
  Country: US (occurrence: US)
  Receive Date: 20121129
  Receipt Date: 20121129
  Transmission Date: 20130627
  Serious: Yes (Hospitalization)
  Sender: FDA-Public Use
  Company Number: US-PFIZER INC-2012273593

PATIENT
  Age: 50 Year
  Sex: Female
  Weight: 57.78 kg

DRUGS (8)
  1. TOFACITINIB CITRATE [Suspect]
     Indication: RHEUMATOID ARTHRITIS
     Dosage: UNK
     Dates: end: 20121020
  2. METHOTREXATE [Concomitant]
     Indication: RA
  3. FOLIC ACID [Concomitant]
     Indication: RA
  4. PREDNISONE [Concomitant]
     Indication: RA
  5. NORVASC [Concomitant]
     Indication: HYPERTENSION
  6. NEXIUM [Concomitant]
     Indication: ACID REFLUX (ESOPHAGEAL)
  7. METHADONE [Concomitant]
     Indication: ARTHRITIC PAINS
  8. MULTIVITAMINS [Concomitant]
     Indication: SUPPLEMENTATION THERAPY

REACTIONS (1)
  - Keratitis herpetic [Recovered/Resolved]
